FAERS Safety Report 16575297 (Version 2)
Quarter: 2019Q3

REPORT INFORMATION
  Report Type: Spontaneous
  Country: US (occurrence: US)
  Receive Date: 20190716
  Receipt Date: 20190725
  Transmission Date: 20191004
  Serious: No
  Sender: FDA-Public Use
  Company Number: US-BIOGEN-2019BI00762617

PATIENT
  Age: 24 Year
  Sex: Female

DRUGS (1)
  1. TECFIDERA [Suspect]
     Active Substance: DIMETHYL FUMARATE
     Indication: MULTIPLE SCLEROSIS
     Route: 065
     Dates: start: 20190610

REACTIONS (4)
  - Insomnia [Recovered/Resolved]
  - Flushing [Recovered/Resolved]
  - Abdominal pain upper [Recovered/Resolved]
  - Gastric disorder [Recovered/Resolved]

NARRATIVE: CASE EVENT DATE: 20190610
